FAERS Safety Report 6101493-4 (Version None)
Quarter: 2009Q1

REPORT INFORMATION
  Report Type: 
  Country: None (occurrence: None)
  Receive Date: 20090303
  Receipt Date: 20090303
  Transmission Date: 20090719
  Serious: Yes (Other)
  Sender: FDA-Public Use
  Company Number: None

PATIENT
  Sex: Female
  Weight: 113.3993 kg

DRUGS (1)
  1. MIRENA [Suspect]
     Indication: CONTRACEPTION
     Dates: start: 20080306, end: 20090301

REACTIONS (10)
  - ACNE [None]
  - CONDITION AGGRAVATED [None]
  - DYSMENORRHOEA [None]
  - HYPERSENSITIVITY [None]
  - IMMUNE SYSTEM DISORDER [None]
  - LIBIDO DECREASED [None]
  - MALAISE [None]
  - MEMORY IMPAIRMENT [None]
  - METRORRHAGIA [None]
  - WEIGHT INCREASED [None]
